FAERS Safety Report 9990048 (Version 1)
Quarter: 2014Q1

REPORT INFORMATION
  Report Type: Report from Study
  Country: US (occurrence: US)
  Receive Date: 20140310
  Receipt Date: 20140310
  Transmission Date: 20141002
  Serious: No
  Sender: FDA-Public Use
  Company Number: US-ABBVIE-13P-163-1132267-00

PATIENT
  Age: 32 Year
  Sex: Female

DRUGS (7)
  1. HUMIRA [Suspect]
     Indication: CROHN^S DISEASE
     Dates: start: 20130718, end: 20130718
  2. HUMIRA [Suspect]
     Dates: start: 20130728
  3. PENTASA [Concomitant]
     Indication: CROHN^S DISEASE
     Route: 048
  4. FLUCONAZOLE [Concomitant]
     Indication: ACNE
     Dosage: 100MG DAILY
     Route: 048
  5. PREDNISONE [Concomitant]
     Indication: CROHN^S DISEASE
     Dosage: 10MG 1.5 TABLETS DAILY
  6. TYLENOL [Concomitant]
     Indication: PAIN
     Dosage: AS NEEDED
     Route: 048
  7. ONEDAY WOMEN^S MULTIVITAMIN [Concomitant]
     Indication: SUPPLEMENTATION THERAPY
     Dosage: DAILY

REACTIONS (3)
  - Asthenia [Recovering/Resolving]
  - Headache [Recovering/Resolving]
  - Diarrhoea [Recovering/Resolving]
